FAERS Safety Report 10043166 (Version 1)
Quarter: 2014Q1

REPORT INFORMATION
  Report Type: Report from Study
  Country: AR (occurrence: AR)
  Receive Date: 20140328
  Receipt Date: 20140328
  Transmission Date: 20141002
  Serious: Yes (Other)
  Sender: FDA-Public Use
  Company Number: AR-BRISTOL-MYERS SQUIBB COMPANY-20562294

PATIENT
  Age: 63 Year
  Sex: Female

DRUGS (1)
  1. ORENCIA FOR INJ 250 MG/VIAL [Suspect]
     Dosage: 2 VIALS.DRUG INTERRUPTED ON 18-DEC-2013.
     Route: 042
     Dates: start: 20131021

REACTIONS (1)
  - Arthropathy [Recovering/Resolving]
